FAERS Safety Report 17257119 (Version 5)
Quarter: 2020Q2

REPORT INFORMATION
  Report Type: Spontaneous
  Country: US (occurrence: US)
  Receive Date: 20200110
  Receipt Date: 20200428
  Transmission Date: 20200713
  Serious: Yes (Life-Threatening, Hospitalization, Other)
  Sender: FDA-Public Use
  Company Number: US-PFIZER INC-2020008843

PATIENT
  Age: 46 Year
  Sex: Male

DRUGS (11)
  1. CYTARABINE. [Suspect]
     Active Substance: CYTARABINE
     Indication: CENTRAL NERVOUS SYSTEM LEUKAEMIA
     Dosage: 50 MG, CYCLIC (EVERY MONDAY-WEDNESDAY-FRIDAY)
     Route: 037
  2. METHOTREXATE SODIUM. [Suspect]
     Active Substance: METHOTREXATE SODIUM
     Indication: ACUTE LYMPHOCYTIC LEUKAEMIA RECURRENT
  3. HYDROCORTISONE. [Concomitant]
     Active Substance: HYDROCORTISONE
     Indication: ACUTE LYMPHOCYTIC LEUKAEMIA RECURRENT
  4. SODIUM CHLORIDE 0.9% [Concomitant]
     Active Substance: SODIUM CHLORIDE
     Dosage: UNK (METHOTREXATE (PF) 12.5MG IN NACL 0.9% (PF) VIA LP EVERY MONDAY-WEDNESDAY-FRIDAY)
     Route: 037
  5. PREDNISONE. [Concomitant]
     Active Substance: PREDNISONE
     Indication: GRAFT VERSUS HOST DISEASE IN SKIN
     Dosage: UNK
  6. CYTARABINE. [Suspect]
     Active Substance: CYTARABINE
     Indication: ACUTE LYMPHOCYTIC LEUKAEMIA RECURRENT
  7. HYDROCORTISONE. [Concomitant]
     Active Substance: HYDROCORTISONE
     Indication: CENTRAL NERVOUS SYSTEM LEUKAEMIA
     Dosage: 25 MG, UNK (EVERY MONDAY-WEDNESDAY-FRIDAY)
     Route: 037
  8. PANTOPRAZOLE [Suspect]
     Active Substance: PANTOPRAZOLE
     Indication: PROPHYLAXIS
     Dosage: UNK
  9. TACROLIMUS. [Concomitant]
     Active Substance: TACROLIMUS
     Indication: PROPHYLAXIS AGAINST GRAFT VERSUS HOST DISEASE
     Dosage: UNK
  10. METHOTREXATE SODIUM. [Suspect]
     Active Substance: METHOTREXATE SODIUM
     Indication: CENTRAL NERVOUS SYSTEM LEUKAEMIA
     Dosage: 12.5 MG, CYCLIC (METHOTREXATE (PF) 12.5MG IN NACL 0.9% (PF) VIA LP EVERY MONDAY-WEDNESDAY-FRIDAY)
     Route: 037
  11. PENICILLIN VK [Suspect]
     Active Substance: PENICILLIN V POTASSIUM
     Indication: PROPHYLAXIS
     Dosage: UNK

REACTIONS (15)
  - Acute kidney injury [Unknown]
  - Encephalopathy [Recovered/Resolved]
  - Dehydration [Unknown]
  - Vomiting [Unknown]
  - Pancytopenia [Unknown]
  - Neurotoxicity [Recovering/Resolving]
  - Quadriplegia [Recovering/Resolving]
  - Hypotension [Recovering/Resolving]
  - Respiratory failure [Recovered/Resolved]
  - Diarrhoea [Unknown]
  - Gastrointestinal toxicity [Unknown]
  - Drug level increased [Recovered/Resolved]
  - Nausea [Unknown]
  - Anuria [Unknown]
  - Unresponsive to stimuli [Recovered/Resolved]
